FAERS Safety Report 9158909 (Version 4)
Quarter: 2015Q4

REPORT INFORMATION
  Report Type: Report from Study
  Country: US (occurrence: US)
  Receive Date: 20130313
  Receipt Date: 20151026
  Transmission Date: 20160305
  Serious: Yes (Hospitalization, Other)
  Sender: FDA-Public Use
  Company Number: US-BIOGENIDEC-2013BI022446

PATIENT
  Age: 49 Year
  Sex: Female

DRUGS (1)
  1. TYSABRI [Suspect]
     Active Substance: NATALIZUMAB
     Indication: MULTIPLE SCLEROSIS
     Route: 042
     Dates: start: 20120412, end: 20130124

REACTIONS (3)
  - Aneurysm ruptured [Unknown]
  - Brain injury [Not Recovered/Not Resolved]
  - Subdural haemorrhage [Unknown]

NARRATIVE: CASE EVENT DATE: 20130202
